FAERS Safety Report 4443497-3 (Version None)
Quarter: 2004Q3

REPORT INFORMATION
  Report Type: 
  Country: None (occurrence: None)
  Receive Date: 20040903
  Receipt Date: 20040903
  Transmission Date: 20050211
  Serious: Yes (Disabling)
  Sender: FDA-Public Use
  Company Number: None

PATIENT
  Age: 67 Year
  Sex: Female
  Weight: 81.6475 kg

DRUGS (2)
  1. LEVAQUIN [Suspect]
     Indication: ARTHRITIS
     Dosage: 1 A DAY ORAL
     Route: 048
     Dates: start: 20040821, end: 20040824
  2. LEVAQUIN [Suspect]
     Indication: TENDONITIS
     Dosage: 1 A DAY ORAL
     Route: 048
     Dates: start: 20040821, end: 20040824

REACTIONS (3)
  - ARTHRALGIA [None]
  - JOINT SWELLING [None]
  - TENDONITIS [None]
